FAERS Safety Report 5533820-0 (Version None)
Quarter: 2007Q4

REPORT INFORMATION
  Report Type: 
  Country: None (occurrence: None)
  Receive Date: 20071129
  Receipt Date: 20071113
  Transmission Date: 20080405
  Serious: Yes (Disabling)
  Sender: FDA-Public Use
  Company Number: 8027010

PATIENT
  Age: 70 Year
  Sex: Male
  Weight: 70 kg

DRUGS (8)
  1. KEPPRA [Suspect]
     Indication: POST-ANOXIC MYOCLONUS
     Dosage: 1000 MG 3/D PO
     Route: 048
     Dates: start: 20070401, end: 20070901
  2. KEPPRA [Suspect]
     Indication: POST-ANOXIC MYOCLONUS
     Dosage: 750 MG /D
     Dates: start: 20070902, end: 20070101
  3. KEPPRA [Suspect]
     Indication: POST-ANOXIC MYOCLONUS
     Dosage: 250 MG /D
     Dates: start: 20070101, end: 20070101
  4. KEPPRA [Suspect]
     Indication: POST-ANOXIC MYOCLONUS
     Dosage: 125 MG /D
     Dates: start: 20071101, end: 20070101
  5. ASPIRIN [Suspect]
     Indication: STATUS EPILEPTICUS
     Dosage: 100 MG 1/D PO
     Route: 048
  6. BELOC-ZOK [Suspect]
     Dosage: 1.5 DF /D PO
     Route: 048
  7. DELIX /00885601/ [Suspect]
     Dosage: 2.5 DF 1/D PO
     Route: 048
  8. INEGY [Suspect]

REACTIONS (8)
  - ARTHROPATHY [None]
  - CEREBELLAR SYNDROME [None]
  - COORDINATION ABNORMAL [None]
  - FALL [None]
  - JOINT INSTABILITY [None]
  - NERVOUS SYSTEM DISORDER [None]
  - SLEEP DISORDER [None]
  - THINKING ABNORMAL [None]
